FAERS Safety Report 4329545-X (Version None)
Quarter: 2004Q2

REPORT INFORMATION
  Report Type: 
  Country: None (occurrence: None)
  Receive Date: 20040401
  Receipt Date: 20040304
  Transmission Date: 20050107
  Serious: Yes (Death, Hospitalization)
  Sender: FDA-Public Use
  Company Number: JP-BRISTOL-MYERS SQUIBB COMPANY-12524682

PATIENT
  Age: 47 Year
  Sex: Female

DRUGS (6)
  1. TAXOL [Suspect]
     Indication: BREAST CANCER METASTATIC
     Dosage: TAXOL 175 MG/M^2 FROM 18-JUN TO 09-JUL-2001 (2 DAYS)
     Route: 042
     Dates: start: 20010730, end: 20010903
  2. BRIPLATIN [Suspect]
     Indication: BREAST CANCER METASTATIC
     Route: 042
     Dates: start: 20010917, end: 20011207
  3. FLUOROURACIL [Suspect]
     Indication: BREAST CANCER METASTATIC
     Route: 042
     Dates: start: 20010917, end: 20011209
  4. AREDIA [Concomitant]
     Route: 042
     Dates: start: 20010705, end: 20011130
  5. ARIMIDEX [Concomitant]
     Route: 048
     Dates: start: 20010614, end: 20011213
  6. MEDROXYPROGESTERONE ACETATE [Concomitant]
     Route: 048
     Dates: start: 20010915, end: 20011213

REACTIONS (10)
  - ASCITES [None]
  - BREAST CANCER METASTATIC [None]
  - DISEASE PROGRESSION [None]
  - HEPATIC ATROPHY [None]
  - HEPATIC CIRRHOSIS [None]
  - HEPATIC FAILURE [None]
  - NEUTROPENIA [None]
  - PLEURAL EFFUSION [None]
  - PYREXIA [None]
  - STOMATITIS [None]
